FAERS Safety Report 5669821-1 (Version None)
Quarter: 2008Q1

REPORT INFORMATION
  Report Type: 
  Country: None (occurrence: None)
  Receive Date: 20080317
  Receipt Date: 20080305
  Transmission Date: 20080703
  Serious: Yes (Death, Hospitalization)
  Sender: FDA-Public Use
  Company Number: US-PFIZER INC-2005130019

PATIENT
  Sex: Male
  Weight: 44 kg

DRUGS (6)
  1. SUTENT [Suspect]
     Indication: METASTATIC RENAL CELL CARCINOMA
     Route: 048
     Dates: start: 20050824, end: 20050921
  2. LEVAQUIN [Concomitant]
     Route: 048
  3. VICODIN [Concomitant]
     Route: 048
  4. MORPHINE [Concomitant]
     Route: 048
  5. NYSTATIN [Concomitant]
     Route: 048
  6. IMODIUM [Concomitant]
     Route: 048

REACTIONS (3)
  - DISEASE PROGRESSION [None]
  - METASTATIC RENAL CELL CARCINOMA [None]
  - PERIRECTAL ABSCESS [None]
